FAERS Safety Report 15274760 (Version 2)
Quarter: 2019Q2

REPORT INFORMATION
  Report Type: Spontaneous
  Country: CA (occurrence: CA)
  Receive Date: 20180814
  Receipt Date: 20190612
  Transmission Date: 20190711
  Serious: Yes (Other)
  Sender: FDA-Public Use
  Company Number: CA-TEVA-2018-CA-940091

PATIENT

DRUGS (1)
  1. RABEPRAZOLE [Suspect]
     Active Substance: RABEPRAZOLE
     Indication: GASTRIC ULCER
     Route: 065

REACTIONS (8)
  - Functional gastrointestinal disorder [Unknown]
  - Ill-defined disorder [Unknown]
  - Blood cholesterol decreased [Unknown]
  - Feeding disorder [Unknown]
  - Immune system disorder [Unknown]
  - Abdominal pain upper [Unknown]
  - Nutritional condition abnormal [Unknown]
  - Vomiting [Unknown]
